FAERS Safety Report 9870423 (Version 1)
Quarter: 2014Q1

REPORT INFORMATION
  Report Type: Spontaneous
  Country: US (occurrence: None)
  Receive Date: 20140204
  Receipt Date: 20140204
  Transmission Date: 20141002
  Serious: Yes (Other)
  Sender: FDA-Public Use
  Company Number: None

PATIENT
  Age: 38 Year
  Sex: Female
  Weight: 59.88 kg

DRUGS (2)
  1. AMOX-CLAV [Suspect]
     Indication: MALAISE
     Dosage: 1 TABLET  TWICE DAILY  TAKEN BY MOUTH
     Route: 048
     Dates: start: 20140129, end: 20140131
  2. AMOX-CLAV [Suspect]
     Indication: SINUSITIS
     Dosage: 1 TABLET  TWICE DAILY  TAKEN BY MOUTH
     Route: 048
     Dates: start: 20140129, end: 20140131

REACTIONS (8)
  - Neuralgia [None]
  - Fear [None]
  - Pain in extremity [None]
  - Musculoskeletal pain [None]
  - Back pain [None]
  - Headache [None]
  - Feeling abnormal [None]
  - Therapy cessation [None]
